FAERS Safety Report 7316644-3 (Version None)
Quarter: 2011Q1

REPORT INFORMATION
  Report Type: 
  Country: None (occurrence: None)
  Receive Date: 20110226
  Receipt Date: 20100721
  Transmission Date: 20110831
  Serious: No
  Sender: FDA-Public Use
  Company Number: US-ALLERGAN-1009506US

PATIENT
  Sex: Female

DRUGS (2)
  1. BOTOX COSMETIC [Suspect]
     Indication: SKIN WRINKLING
     Dosage: UNK
     Dates: start: 20100716, end: 20100716
  2. BOTOX COSMETIC [Suspect]
     Dosage: UNK
     Dates: start: 20100101, end: 20100101

REACTIONS (2)
  - MYDRIASIS [None]
  - EYE PAIN [None]
